FAERS Safety Report 5119577-6 (Version None)
Quarter: 2006Q4

REPORT INFORMATION
  Report Type: 
  Country: None (occurrence: None)
  Receive Date: 20061003
  Receipt Date: 20060920
  Transmission Date: 20070319
  Serious: Yes (Hospitalization)
  Sender: FDA-Public Use
  Company Number: HK-JNJFOC-20060906452

PATIENT
  Age: 63 Year
  Sex: Male

DRUGS (11)
  1. LEVOFLOXACIN [Suspect]
     Indication: PULMONARY TUBERCULOSIS
     Route: 065
  2. ISOCOTIN [Suspect]
     Route: 065
  3. ISOCOTIN [Suspect]
     Route: 065
  4. ISOCOTIN [Suspect]
     Indication: DRUG USE FOR UNKNOWN INDICATION
     Route: 065
  5. RIFADIN [Suspect]
     Indication: DRUG USE FOR UNKNOWN INDICATION
     Route: 065
  6. ETHAMBUTOL HYDROCHLORIDE [Concomitant]
     Route: 065
  7. ETHAMBUTOL HYDROCHLORIDE [Concomitant]
     Route: 065
  8. ETHAMBUTOL HYDROCHLORIDE [Concomitant]
     Indication: PULMONARY TUBERCULOSIS
     Route: 065
  9. PYRAZINAMIDE [Concomitant]
     Route: 065
  10. PYRAZINAMIDE [Concomitant]
     Indication: PULMONARY TUBERCULOSIS
     Route: 065
  11. STREPTOMYCIN [Concomitant]
     Indication: PULMONARY TUBERCULOSIS
     Route: 065

REACTIONS (1)
  - INTESTINAL PERFORATION [None]
